FAERS Safety Report 20375122 (Version 1)
Quarter: 2022Q1

REPORT INFORMATION
  Report Type: Spontaneous
  Country: US (occurrence: US)
  Receive Date: 20220125
  Receipt Date: 20220125
  Transmission Date: 20220423
  Serious: Yes (Other)
  Sender: FDA-Public Use
  Company Number: US-SA-SAC20220123000042

PATIENT
  Sex: Male

DRUGS (1)
  1. DUPIXENT [Suspect]
     Active Substance: DUPILUMAB
     Dosage: 300 MG, QOW
     Route: 058

REACTIONS (12)
  - Device dislocation [Unknown]
  - Haemorrhage [Unknown]
  - Parkinson^s disease [Unknown]
  - Aortic aneurysm [Unknown]
  - Tremor [Unknown]
  - Eczema [Unknown]
  - Peripheral swelling [Unknown]
  - Haemoglobin decreased [Unknown]
  - Wound contamination [Unknown]
  - Coronary artery bypass [Unknown]
  - Stent placement [Unknown]
  - Limb operation [Unknown]
